FAERS Safety Report 8615029-7 (Version None)
Quarter: 2012Q3

REPORT INFORMATION
  Report Type: 
  Country: None (occurrence: None)
  Receive Date: 20120815
  Receipt Date: 20120815
  Transmission Date: 20120928
  Serious: Yes (Other)
  Sender: FDA-Public Use
  Company Number: None

PATIENT
  Sex: Female
  Weight: 69.4003 kg

DRUGS (1)
  1. WARFARIN SODIUM [Suspect]
     Indication: PULMONARY EMBOLISM
     Dosage: 7.5 MG EXCEPT 5MG ON MON + FRIDAY DAILY PO
     Route: 048
     Dates: start: 20010101

REACTIONS (4)
  - PRURITUS [None]
  - HEADACHE [None]
  - HYPERAESTHESIA [None]
  - PRODUCT SUBSTITUTION ISSUE [None]
